FAERS Safety Report 7097307-9 (Version None)
Quarter: 2010Q4

REPORT INFORMATION
  Report Type: 
  Country: None (occurrence: None)
  Receive Date: 20101111
  Receipt Date: 20100115
  Transmission Date: 20110411
  Serious: No
  Sender: FDA-Public Use
  Company Number: US-KINGPHARMUSA00001-K201000058

PATIENT
  Age: 21 Year
  Sex: Female

DRUGS (2)
  1. SKELAXIN [Suspect]
     Indication: PAIN
     Dosage: 800 MG, QID
     Route: 048
     Dates: start: 20100101, end: 20100101
  2. NEURONTIN [Concomitant]
     Indication: NEURALGIA
     Dosage: UNK

REACTIONS (1)
  - DRUG INEFFECTIVE [None]
